FAERS Safety Report 7534962 (Version 3)
Quarter: 2013Q4

REPORT INFORMATION
  Report Type: Report from Study
  Country: BR (occurrence: BR)
  Receive Date: 20100810
  Receipt Date: 20131127
  Transmission Date: 20140711
  Serious: Yes (Other)
  Sender: FDA-Public Use
  Company Number: PHHY2010BR51626

PATIENT
  Sex: Female
  Weight: 88 kg

DRUGS (11)
  1. FORASEQ [Suspect]
     Indication: DYSPNOEA
     Dosage: UNK UKN, BID
  2. FORASEQ [Suspect]
     Indication: LUNG DISORDER
     Dosage: UNK UKN, UNK
  3. FORASEQ [Suspect]
     Dosage: 1 DF, QD (AT NIGHT)
  4. PURAN T4 [Concomitant]
     Indication: HYPOTHYROIDISM
     Dosage: 75 MG, DAILY (1 TABLET, DAILY)
     Route: 048
  5. OMEPRAZOLE [Concomitant]
     Indication: GASTROOESOPHAGEAL REFLUX DISEASE
     Dosage: 1 DF, DAILY
  6. ALPRAZOLAM [Concomitant]
     Indication: SLEEP DISORDER
     Dosage: 1 MG, DAILY (1 TABLET DAILY)
     Route: 048
  7. XALATAN [Concomitant]
     Indication: GLAUCOMA
     Dosage: 1 DRP, QD (1 DROP IN EACH EYE)
  8. ARADOIS H [Concomitant]
     Indication: BLOOD PRESSURE ABNORMAL
     Dosage: UNK UKN, UNK
  9. PROCIMAX [Concomitant]
     Indication: DEPRESSION
     Dosage: 20 MG, UNK
  10. CLINFAR [Concomitant]
     Indication: BLOOD CHOLESTEROL ABNORMAL
     Dosage: UNK UKN, UNK
  11. ONBRIZE [Concomitant]
     Dosage: UNK UKN, UNK
     Dates: start: 20131120, end: 20131120

REACTIONS (5)
  - Thrombosis [Not Recovered/Not Resolved]
  - Retinal artery embolism [Not Recovered/Not Resolved]
  - Visual impairment [Not Recovered/Not Resolved]
  - Retinal artery thrombosis [Not Recovered/Not Resolved]
  - Intraocular pressure test abnormal [Unknown]
